FAERS Safety Report 4600151-2 (Version None)
Quarter: 2005Q1

REPORT INFORMATION
  Report Type: 
  Country: None (occurrence: None)
  Receive Date: 20050307
  Receipt Date: 20050303
  Transmission Date: 20050727
  Serious: Yes (Hospitalization)
  Sender: FDA-Public Use
  Company Number: 05-02-0322

PATIENT
  Age: 47 Year
  Sex: Male

DRUGS (1)
  1. CLOZAPINE [Suspect]
     Dosage: 25MG QD ORAL
     Route: 048
     Dates: start: 20040101, end: 20041001

REACTIONS (2)
  - ENCEPHALOPATHY [None]
  - ILEUS PARALYTIC [None]
